FAERS Safety Report 24816752 (Version 1)
Quarter: 2025Q1

REPORT INFORMATION
  Report Type: Spontaneous
  Country: CN (occurrence: CN)
  Receive Date: 20250107
  Receipt Date: 20250107
  Transmission Date: 20250409
  Serious: Yes (Death, Other)
  Sender: JIANGSU HENGRUI PHARMACEUTICALS CO., LTD.
  Company Number: CN-JIANGSU HENGRUI PHARMACEUTICALS CO., LTD.-H2024001207812

PATIENT
  Age: 60 Year

DRUGS (20)
  1. IRINOTECAN HYDROCHLORIDE [Suspect]
     Active Substance: IRINOTECAN HYDROCHLORIDE
     Indication: Small cell lung cancer extensive stage
  2. IRINOTECAN HYDROCHLORIDE [Suspect]
     Active Substance: IRINOTECAN HYDROCHLORIDE
  3. IRINOTECAN HYDROCHLORIDE [Suspect]
     Active Substance: IRINOTECAN HYDROCHLORIDE
  4. ETOPOSIDE [Suspect]
     Active Substance: ETOPOSIDE
     Indication: Small cell lung cancer limited stage
  5. ETOPOSIDE [Suspect]
     Active Substance: ETOPOSIDE
  6. ETOPOSIDE [Suspect]
     Active Substance: ETOPOSIDE
  7. BEVACIZUMAB [Suspect]
     Active Substance: BEVACIZUMAB
     Indication: Small cell lung cancer extensive stage
     Dosage: 400 MG, Q3W
  8. CISPLATIN [Suspect]
     Active Substance: CISPLATIN
     Indication: Small cell lung cancer limited stage
  9. CISPLATIN [Suspect]
     Active Substance: CISPLATIN
  10. CARBOPLATIN [Suspect]
     Active Substance: CARBOPLATIN
     Indication: Small cell lung cancer limited stage
  11. CARBOPLATIN [Suspect]
     Active Substance: CARBOPLATIN
  12. CARBOPLATIN [Suspect]
     Active Substance: CARBOPLATIN
  13. SERPLULIMAB [Suspect]
     Active Substance: SERPLULIMAB
     Indication: Small cell lung cancer limited stage
  14. SERPLULIMAB [Suspect]
     Active Substance: SERPLULIMAB
  15. SERPLULIMAB [Suspect]
     Active Substance: SERPLULIMAB
  16. DURVALUMAB [Suspect]
     Active Substance: DURVALUMAB
     Indication: Small cell lung cancer limited stage
  17. DURVALUMAB [Suspect]
     Active Substance: DURVALUMAB
  18. DURVALUMAB [Suspect]
     Active Substance: DURVALUMAB
  19. CATEQUENTINIB [Concomitant]
     Active Substance: CATEQUENTINIB
     Indication: Small cell lung cancer extensive stage
  20. CATEQUENTINIB [Concomitant]
     Active Substance: CATEQUENTINIB

REACTIONS (9)
  - Myelosuppression [Fatal]
  - Infection [Fatal]
  - Respiratory failure [Fatal]
  - Cardiac failure acute [Fatal]
  - Myelosuppression [Recovered/Resolved]
  - Cardiac failure acute [Recovered/Resolved]
  - Febrile infection [Recovered/Resolved]
  - Febrile infection [Unknown]
  - Neoplasm progression [Unknown]
